FAERS Safety Report 7806938-7 (Version None)
Quarter: 2011Q4

REPORT INFORMATION
  Report Type: 
  Country: None (occurrence: None)
  Receive Date: 20111011
  Receipt Date: 20111003
  Transmission Date: 20120403
  Serious: Yes (Hospitalization, Other)
  Sender: FDA-Public Use
  Company Number: SE-ROCHE-802889

PATIENT
  Age: 2 Year
  Sex: Female
  Weight: 12 kg

DRUGS (7)
  1. ACTEMRA [Suspect]
     Indication: JUVENILE ARTHRITIS
     Route: 042
  2. ACTEMRA [Suspect]
     Route: 042
  3. METHOTREXATE [Concomitant]
  4. PREDNISONE [Concomitant]
     Route: 048
  5. NEXIUM [Concomitant]
     Route: 048
  6. ACTEMRA [Suspect]
     Route: 042
  7. IBUPROFEN [Concomitant]
     Route: 054

REACTIONS (4)
  - PAIN [None]
  - HYPOTENSION [None]
  - PYREXIA [None]
  - CHILLS [None]
